FAERS Safety Report 12696794 (Version 2)
Quarter: 2016Q3

REPORT INFORMATION
  Report Type: Report from Study
  Country: CN (occurrence: CN)
  Receive Date: 20160830
  Receipt Date: 20160923
  Transmission Date: 20161109
  Serious: Yes (Hospitalization, Other)
  Sender: FDA-Public Use
  Company Number: CN-ROCHE-1751332

PATIENT
  Age: 39 Year
  Sex: Male
  Weight: 45 kg

DRUGS (1)
  1. AVASTIN [Suspect]
     Active Substance: BEVACIZUMAB
     Indication: COLON CANCER
     Dosage: 300MG AND 400MG ALTERNATE USE
     Route: 041
     Dates: start: 20150605, end: 20160706

REACTIONS (10)
  - Drug intolerance [Unknown]
  - Blood albumin decreased [Unknown]
  - Ascites [Unknown]
  - Jaundice [Unknown]
  - Bile duct obstruction [Unknown]
  - Hepatic function abnormal [Unknown]
  - Palmar-plantar erythrodysaesthesia syndrome [Unknown]
  - Blood bilirubin increased [Unknown]
  - Vomiting [Unknown]
  - Pyrexia [Unknown]

NARRATIVE: CASE EVENT DATE: 20160702
